FAERS Safety Report 20851774 (Version 1)
Quarter: 2022Q2

REPORT INFORMATION
  Report Type: Spontaneous
  Country: BR (occurrence: BR)
  Receive Date: 20220520
  Receipt Date: 20220520
  Transmission Date: 20220721
  Serious: Yes (Hospitalization, Other)
  Sender: FDA-Public Use
  Company Number: BR-NOVOPROD-917468

PATIENT
  Age: 74 Year
  Sex: Female
  Weight: 61 kg

DRUGS (10)
  1. INSULIN HUMAN [Suspect]
     Active Substance: INSULIN HUMAN
     Indication: Diabetes mellitus
     Dosage: 30 +0+10
     Route: 065
  2. LOSARTAN [Concomitant]
     Active Substance: LOSARTAN
     Indication: Product used for unknown indication
     Dosage: 50 MG, BID
  3. CILOSTAZOL [Concomitant]
     Active Substance: CILOSTAZOL
     Indication: Product used for unknown indication
     Dosage: 50 MG, BID
  4. GLIMEPIRIDE [Concomitant]
     Active Substance: GLIMEPIRIDE
     Indication: Product used for unknown indication
     Dosage: 4 MG, QD (AT LUNCH)
  5. HYDROCHLOROTHIAZIDE [Concomitant]
     Active Substance: HYDROCHLOROTHIAZIDE
     Indication: Product used for unknown indication
     Dosage: 25 MG, QD
  6. VITAMIN B COMPLEX [Concomitant]
     Active Substance: CYANOCOBALAMIN\DEXPANTHENOL\NIACINAMIDE\PYRIDOXINE HYDROCHLORIDE\RIBOFLAVIN 5^-PHOSPHATE SODIUM\THIA
     Indication: Product used for unknown indication
     Dosage: 1 TABLET PER DAY
  7. CALCIUM CARBONATE [Concomitant]
     Active Substance: CALCIUM CARBONATE
     Indication: Product used for unknown indication
     Dosage: 600 MG, QD
  8. ALENDRONATE [Concomitant]
     Active Substance: ALENDRONATE SODIUM
     Indication: Product used for unknown indication
     Dosage: 70 MG, QW
  9. RACECADOTRIL [Concomitant]
     Active Substance: RACECADOTRIL
     Indication: Product used for unknown indication
     Dosage: UNKNOWN DOSE
  10. ESCITALOPRAM [Concomitant]
     Active Substance: ESCITALOPRAM OXALATE
     Indication: Product used for unknown indication
     Dosage: 10 MG, QD

REACTIONS (3)
  - Diabetic metabolic decompensation [Unknown]
  - Hypoglycaemia [Unknown]
  - Diarrhoea [Unknown]
